FAERS Safety Report 10789122 (Version 1)
Quarter: 2015Q1

REPORT INFORMATION
  Report Type: Spontaneous
  Country: US (occurrence: None)
  Receive Date: 20150211
  Receipt Date: 20150211
  Transmission Date: 20150721
  Serious: Yes (Other)
  Sender: FDA-Public Use
  Company Number: None

PATIENT
  Age: 50 Year
  Sex: Male
  Weight: 86.18 kg

DRUGS (1)
  1. INVOKANA [Suspect]
     Active Substance: CANAGLIFLOZIN
     Dosage: 1 PILL/DAY ONCE DAILY TAKEN BY MOUTH
     Route: 048

REACTIONS (2)
  - Mucous membrane disorder [None]
  - Fungal infection [None]

NARRATIVE: CASE EVENT DATE: 20130415
